FAERS Safety Report 8766043 (Version 2)
Quarter: 2012Q4

REPORT INFORMATION
  Report Type: 
  Country: JP (occurrence: JP)
  Receive Date: 20120904
  Receipt Date: 20121106
  Transmission Date: 20130627
  Serious: No
  Sender: FDA-Public Use
  Company Number: JP-009507513-1209JPN000469

PATIENT

DRUGS (4)
  1. DORZOLAMIDE HYDROCHLORIDE (+) TIMOLOL MALEATE [Suspect]
     Indication: OPEN ANGLE GLAUCOMA
     Dosage: 1 Gtt, bid,  right eye
     Route: 047
     Dates: start: 20110713
  2. DORZOLAMIDE HYDROCHLORIDE (+) TIMOLOL MALEATE [Suspect]
     Dosage: 1 Gtt, bid,left eye
     Route: 047
     Dates: start: 20110810
  3. LUMIGAN [Concomitant]
     Indication: GLAUCOMA
     Dosage: 1 Gtt, qd, both eyes
     Route: 047
     Dates: start: 20100212
  4. LUMIGAN [Concomitant]
     Indication: HYPERTONIA

REACTIONS (1)
  - Intraocular pressure increased [Recovering/Resolving]
